FAERS Safety Report 23525606 (Version 1)
Quarter: 2024Q1

REPORT INFORMATION
  Report Type: Spontaneous
  Country: US (occurrence: US)
  Receive Date: 20240215
  Receipt Date: 20240215
  Transmission Date: 20240409
  Serious: No
  Sender: FDA-Public Use
  Company Number: US-BRISTOL-MYERS SQUIBB COMPANY-2024-022946

PATIENT
  Age: 89 Year
  Sex: Female
  Weight: 46.27 kg

DRUGS (1)
  1. ONUREG [Suspect]
     Active Substance: AZACITIDINE
     Indication: Myeloid leukaemia
     Route: 048

REACTIONS (2)
  - Vitamin B12 decreased [Unknown]
  - Weight decreased [Unknown]
